FAERS Safety Report 9215555 (Version 1)
Quarter: 2013Q2

REPORT INFORMATION
  Report Type: Spontaneous
  Country: US (occurrence: US)
  Receive Date: 20130407
  Receipt Date: 20130407
  Transmission Date: 20140414
  Serious: No
  Sender: FDA-Public Use
  Company Number: US-BAYER-2013-043057

PATIENT
  Sex: Female

DRUGS (3)
  1. BAYER EXTRA STRENGTH BACK + BODY PAIN [Suspect]
     Indication: BACK PAIN
     Dosage: 1 DF, TID
     Route: 048
     Dates: start: 2012, end: 201303
  2. ALEVE TABLET [Suspect]
     Indication: BACK PAIN
     Dosage: 1 DF, UNK
     Route: 048
     Dates: start: 20130326, end: 20130327
  3. CARDIAC MEDICATION [Concomitant]

REACTIONS (3)
  - Nausea [None]
  - Inappropriate schedule of drug administration [None]
  - Expired drug administered [None]
